FAERS Safety Report 11075675 (Version 2)
Quarter: 2016Q1

REPORT INFORMATION
  Report Type: Report from Study
  Country: CA (occurrence: CA)
  Receive Date: 20150429
  Receipt Date: 20160106
  Transmission Date: 20160525
  Serious: Yes (Other)
  Sender: FDA-Public Use
  Company Number: PHHY2011CA22905

PATIENT
  Age: 48 Year
  Sex: Male

DRUGS (2)
  1. SANDOSTATIN LAR DEPOT [Suspect]
     Active Substance: OCTREOTIDE ACETATE
     Indication: NEUROENDOCRINE TUMOUR
     Dosage: 20 MG, QMO (EVERY 4 WEEKS)
     Route: 030
     Dates: start: 20110414
  2. SANDOSTATIN LAR DEPOT [Suspect]
     Active Substance: OCTREOTIDE ACETATE
     Indication: ACROMEGALY
     Dosage: 20 MG, QMO (EVERY 4 WEEKS)
     Route: 030
     Dates: start: 20110316

REACTIONS (22)
  - Peripheral coldness [Unknown]
  - Poor peripheral circulation [Unknown]
  - Blood pressure diastolic increased [Unknown]
  - Gait disturbance [Unknown]
  - Proctalgia [Unknown]
  - Haematochezia [Unknown]
  - Cyanosis [Unknown]
  - Blood pressure systolic increased [Unknown]
  - Fatigue [Unknown]
  - Mental disorder [Unknown]
  - Injury [Unknown]
  - Diarrhoea [Unknown]
  - Injection site pain [Unknown]
  - Headache [Recovered/Resolved]
  - Intervertebral disc protrusion [Unknown]
  - Back pain [Unknown]
  - Visual impairment [Recovered/Resolved]
  - Musculoskeletal stiffness [Unknown]
  - Abdominal distension [Recovered/Resolved]
  - Mobility decreased [Unknown]
  - Pain in extremity [Unknown]
  - Dyspepsia [Unknown]

NARRATIVE: CASE EVENT DATE: 20110317
